FAERS Safety Report 9481747 (Version 1)
Quarter: 2013Q3

REPORT INFORMATION
  Report Type: Spontaneous
  Country: US (occurrence: US)
  Receive Date: 20130828
  Receipt Date: 20130828
  Transmission Date: 20140515
  Serious: No
  Sender: FDA-Public Use
  Company Number: US-009507513-1308USA005476

PATIENT
  Age: 27 Year
  Sex: Female

DRUGS (2)
  1. NEXPLANON [Suspect]
     Indication: CONTRACEPTION
     Dosage: 1 ROD, EVERY THREE YEARS
     Route: 058
     Dates: start: 20130712, end: 20130809
  2. KETAMINE HYDROCHLORIDE [Concomitant]

REACTIONS (5)
  - Palpitations [Unknown]
  - Nausea [Unknown]
  - Diplopia [Unknown]
  - Vomiting [Unknown]
  - Dysgeusia [Unknown]
